FAERS Safety Report 4602336-8 (Version None)
Quarter: 2005Q1

REPORT INFORMATION
  Report Type: 
  Country: None (occurrence: None)
  Receive Date: 20050215
  Receipt Date: 20041109
  Transmission Date: 20050727
  Serious: Yes (Death)
  Sender: FDA-Public Use
  Company Number: 378001

PATIENT
  Age: 49 Year
  Sex: Female
  Weight: 50.3 kg

DRUGS (1)
  1. PEGASYS [Suspect]
     Indication: HEPATITIS C VIRUS
     Dosage: 180 MCG 1 PER WEEK SUBCUTANEOUS
     Route: 058
     Dates: start: 20040503, end: 20040803

REACTIONS (2)
  - COMPLETED SUICIDE [None]
  - NAUSEA [None]
